FAERS Safety Report 7075663-5 (Version None)
Quarter: 2010Q4

REPORT INFORMATION
  Report Type: 
  Country: None (occurrence: None)
  Receive Date: 20101030
  Receipt Date: 20101018
  Transmission Date: 20110411
  Serious: No
  Sender: FDA-Public Use
  Company Number: US-WYE-H18226610

PATIENT
  Age: 47 Year
  Sex: Female
  Weight: 90.8 kg

DRUGS (6)
  1. PRISTIQ [Suspect]
     Indication: DEPRESSION
     Route: 048
     Dates: start: 20100101
  2. GLYBURIDE [Concomitant]
  3. CRESTOR [Concomitant]
  4. LANTUS [Concomitant]
  5. BENICAR [Concomitant]
  6. LOVAZA [Concomitant]

REACTIONS (1)
  - MEDICATION RESIDUE [None]
